FAERS Safety Report 24268738 (Version 2)
Quarter: 2024Q3

REPORT INFORMATION
  Report Type: Report from Study
  Country: IN (occurrence: IN)
  Receive Date: 20240830
  Receipt Date: 20240903
  Transmission Date: 20241017
  Serious: Yes (Death)
  Sender: PFIZER
  Company Number: IN-PFIZER INC-202400246410

PATIENT

DRUGS (3)
  1. CARBOPLATIN [Suspect]
     Active Substance: CARBOPLATIN
     Indication: Brain neoplasm
     Dosage: CYCLIC
  2. CYCLOPHOSPHAMIDE [Suspect]
     Active Substance: CYCLOPHOSPHAMIDE
     Indication: Brain neoplasm
     Dosage: CYCLIC
  3. ETOPOSIDE [Suspect]
     Active Substance: ETOPOSIDE
     Indication: Brain neoplasm
     Dosage: CYCLIC

REACTIONS (1)
  - Toxicity to various agents [Fatal]
